FAERS Safety Report 5428605-X (Version None)
Quarter: 2007Q3

REPORT INFORMATION
  Report Type: 
  Country: None (occurrence: None)
  Receive Date: 20070824
  Receipt Date: 20070809
  Transmission Date: 20080115
  Serious: Yes (Hospitalization)
  Sender: FDA-Public Use
  Company Number: A-NJ2007-16896

PATIENT
  Age: 83 Year
  Sex: Female

DRUGS (16)
  1. TRACLEER [Suspect]
     Indication: PULMONARY HYPERTENSION
     Dosage: 62.5 MG, BID, ORAL
     Route: 048
     Dates: start: 20070622, end: 20070101
  2. CYTARABINE [Concomitant]
  3. COUMADIN [Concomitant]
  4. NEXIUM [Concomitant]
  5. ASPIRIN [Concomitant]
  6. FENTANYL [Concomitant]
  7. ALDACTONE [Concomitant]
  8. LASIX [Concomitant]
  9. HYDREA [Concomitant]
  10. TEMAZEPAM [Concomitant]
  11. MEDROL [Concomitant]
  12. ZOFRAN [Concomitant]
  13. LYRICA [Concomitant]
  14. MULTIVITAMIN [Concomitant]
  15. ASCORBIC ACID [Concomitant]
  16. NORCO [Concomitant]

REACTIONS (9)
  - ANOREXIA [None]
  - CONSTIPATION [None]
  - FATIGUE [None]
  - HIATUS HERNIA [None]
  - HYPOVOLAEMIA [None]
  - NAUSEA [None]
  - OCCULT BLOOD POSITIVE [None]
  - PYREXIA [None]
  - VOMITING [None]
